FAERS Safety Report 18515213 (Version 9)
Quarter: 2021Q1

REPORT INFORMATION
  Report Type: Report from Study
  Country: US (occurrence: US)
  Receive Date: 20201118
  Receipt Date: 20210120
  Transmission Date: 20210419
  Serious: Yes (Death, Hospitalization, Other)
  Sender: FDA-Public Use
  Company Number: US-GILEAD-2020-0504849

PATIENT
  Age: 72 Year
  Sex: Female

DRUGS (10)
  1. AMBRISENTAN [Suspect]
     Active Substance: AMBRISENTAN
     Indication: PULMONARY ARTERIAL HYPERTENSION
  2. ADCIRCA [Suspect]
     Active Substance: TADALAFIL
     Indication: PULMONARY ARTERIAL HYPERTENSION
     Route: 065
  3. REMODULIN [Suspect]
     Active Substance: TREPROSTINIL
     Dosage: 0.87 UG/KG, CONTINUOUS
     Route: 041
     Dates: start: 202011
  4. LASIX [Concomitant]
     Active Substance: FUROSEMIDE
  5. REMODULIN [Suspect]
     Active Substance: TREPROSTINIL
     Dosage: 0.85 UG/KG, CONTINUOUS
     Route: 041
  6. ADEMPAS [Suspect]
     Active Substance: RIOCIGUAT
     Indication: PRODUCT USED FOR UNKNOWN INDICATION
     Route: 065
  7. AMBRISENTAN [Suspect]
     Active Substance: AMBRISENTAN
     Indication: PULMONARY ARTERIAL HYPERTENSION
     Dosage: 10 MG, QD
     Route: 048
     Dates: start: 20190322
  8. REMODULIN [Suspect]
     Active Substance: TREPROSTINIL
     Indication: PULMONARY ARTERIAL HYPERTENSION
     Dosage: UNK, CONTINUOUS IV DRIP
     Route: 042
     Dates: start: 20191007
  9. REMODULIN [Suspect]
     Active Substance: TREPROSTINIL
     Dosage: UNK
     Route: 041
  10. REMODULIN [Suspect]
     Active Substance: TREPROSTINIL
     Dosage: UNK
     Route: 041

REACTIONS (22)
  - Oxygen saturation decreased [Unknown]
  - Right ventricular failure [Fatal]
  - Oxygen consumption increased [Not Recovered/Not Resolved]
  - Flushing [Not Recovered/Not Resolved]
  - Product use complaint [Unknown]
  - Diarrhoea [Not Recovered/Not Resolved]
  - Hypoxia [Unknown]
  - Pericardial effusion [Not Recovered/Not Resolved]
  - Malaise [Not Recovered/Not Resolved]
  - Dyspnoea [Not Recovered/Not Resolved]
  - Dysphagia [Unknown]
  - Ear discomfort [Not Recovered/Not Resolved]
  - Hot flush [Not Recovered/Not Resolved]
  - Asthenia [Unknown]
  - Headache [Not Recovered/Not Resolved]
  - Anxiety [Unknown]
  - Vomiting [Unknown]
  - Blood pressure decreased [Unknown]
  - Gastrooesophageal reflux disease [Unknown]
  - Peripheral swelling [Unknown]
  - Pollakiuria [Unknown]
  - Insomnia [Not Recovered/Not Resolved]
